FAERS Safety Report 13297440 (Version 1)
Quarter: 2017Q1

REPORT INFORMATION
  Report Type: Spontaneous
  Country: US (occurrence: US)
  Receive Date: 20170303
  Receipt Date: 20170303
  Transmission Date: 20170428
  Serious: Yes (Life-Threatening, Hospitalization, Disabling)
  Sender: FDA-Public Use
  Company Number: None

PATIENT
  Age: 29 Year
  Sex: Female
  Weight: 67.5 kg

DRUGS (1)
  1. VENTOLIN [Suspect]
     Active Substance: ALBUTEROL SULFATE
     Indication: ASTHMA
     Dosage: EVERY 4 HOURS RESPIRATORY (INHALATION)
     Route: 055
     Dates: start: 20090301, end: 20170303

REACTIONS (2)
  - Product substitution issue [None]
  - General physical health deterioration [None]

NARRATIVE: CASE EVENT DATE: 20090301
